FAERS Safety Report 20082629 (Version 2)
Quarter: 2021Q4

REPORT INFORMATION
  Report Type: Spontaneous
  Country: DE (occurrence: DE)
  Receive Date: 20211117
  Receipt Date: 20211122
  Transmission Date: 20220303
  Serious: Yes (Hospitalization)
  Sender: FDA-Public Use
  Company Number: DE-ADRED-07115-01

PATIENT
  Age: 65 Year
  Sex: Male

DRUGS (10)
  1. METOPROLOL [Suspect]
     Active Substance: METOPROLOL
     Indication: Product used for unknown indication
     Dosage: 47.5 MG, 0.5-0-0-0, RETARD-TABLETTEN
     Route: 048
  2. LACTULOSE [Concomitant]
     Active Substance: LACTULOSE
     Dosage: 10 GRAM, 1-0-0-0, SIRUP
     Route: 048
  3. TAMSULOSIN [Concomitant]
     Active Substance: TAMSULOSIN
     Dosage: 0.4 MILLIGRAM, QD, 0-0-1-0, RETARD-TABLETTEN
     Route: 048
  4. SPIRONOLACTONE [Concomitant]
     Active Substance: SPIRONOLACTONE
     Dosage: 50 MG, 0.5-0-0-0, TABLETTEN
     Route: 048
  5. LISINOPRIL [Concomitant]
     Active Substance: LISINOPRIL
     Dosage: 5 MILLIGRAM, QD,  0-0-1-0, TABLETTEN
     Route: 048
  6. METAMIZOL                          /06276701/ [Concomitant]
     Dosage: 500 MG,BEDARF, TABLETTEN
     Route: 048
  7. ASPIRIN [Concomitant]
     Active Substance: ASPIRIN
     Dosage: 100 MILLIGRAM, 0-0-1-0, TABLETTEN
     Route: 048
  8. SIMVASTATIN [Concomitant]
     Active Substance: SIMVASTATIN
     Dosage: 20 MG,  0-0-1-0, TABLETTEN
     Route: 048
  9. PANTOPRAZOLE [Concomitant]
     Active Substance: PANTOPRAZOLE
     Dosage: 20 MG, 1-0-0-0, RETARD-TABLETTEN
     Route: 048
  10. BUDESONIDE [Concomitant]
     Active Substance: BUDESONIDE
     Dosage: 50 MICROGRAM, BEDARF, NASENSPRAY
     Route: 045

REACTIONS (3)
  - Angina pectoris [Unknown]
  - Sinus bradycardia [Unknown]
  - Chest pain [Unknown]
